FAERS Safety Report 19772305 (Version 1)
Quarter: 2021Q3

REPORT INFORMATION
  Report Type: Spontaneous
  Country: US (occurrence: US)
  Receive Date: 20210831
  Receipt Date: 20210831
  Transmission Date: 20211014
  Serious: No
  Sender: FDA-Public Use
  Company Number: US-SA-2021SA285742

PATIENT
  Sex: Male
  Weight: 88.89 kg

DRUGS (12)
  1. SOLU?MEDROL [Concomitant]
     Active Substance: METHYLPREDNISOLONE SODIUM SUCCINATE
  2. ACETAMINOPHEN. [Concomitant]
     Active Substance: ACETAMINOPHEN
     Dosage: 5MG
  3. DIPHENHYDRAMINE. [Concomitant]
     Active Substance: DIPHENHYDRAMINE
     Dosage: 5MG
  4. MULTIVITAMINS [VITAMINS NOS] [Concomitant]
     Active Substance: VITAMINS
  5. EPINEPHRINE. [Concomitant]
     Active Substance: EPINEPHRINE
  6. XARELTO [Concomitant]
     Active Substance: RIVAROXABAN
  7. SOTALOL. [Concomitant]
     Active Substance: SOTALOL
  8. NORMAL SALINE [Concomitant]
     Active Substance: SODIUM CHLORIDE
     Dosage: 5MG
  9. LASIX [Concomitant]
     Active Substance: FUROSEMIDE
  10. FABRAZYME [Suspect]
     Active Substance: AGALSIDASE BETA
     Indication: FABRY^S DISEASE
     Dosage: 90 MG, QOW (STRENGTH: 5 MG VIAL, 35 MG VIAL)
     Route: 042
     Dates: start: 20200117
  11. STERILE WATER [Concomitant]
     Active Substance: WATER
  12. POTASSIUM [Concomitant]
     Active Substance: POTASSIUM

REACTIONS (1)
  - Exposure to toxic agent [Unknown]
